FAERS Safety Report 9409641 (Version 2)
Quarter: 2014Q4

REPORT INFORMATION
  Report Type: Report from Study
  Country: VE (occurrence: VE)
  Receive Date: 20130719
  Receipt Date: 20141115
  Transmission Date: 20150529
  Serious: No
  Sender: FDA-Public Use
  Company Number: PHHY2013VE056165

PATIENT
  Age: 62 Year
  Sex: Female

DRUGS (2)
  1. ACLASTA [Suspect]
     Active Substance: ZOLEDRONIC ACID
     Dosage: 5 MG, ANNUALY
     Route: 030
     Dates: start: 20130217, end: 2013
  2. ACLASTA [Suspect]
     Active Substance: ZOLEDRONIC ACID
     Indication: OSTEOPOROSIS
     Dosage: 5 MG, ANNUALY
     Route: 030
     Dates: start: 20100918

REACTIONS (10)
  - Pigmentation disorder [Recovering/Resolving]
  - Hyperkeratosis [Recovering/Resolving]
  - Haematoma [Recovered/Resolved]
  - Face injury [Recovering/Resolving]
  - Social avoidant behaviour [Unknown]
  - Pruritus [Recovered/Resolved]
  - Incorrect route of drug administration [Unknown]
  - Photosensitivity reaction [Recovering/Resolving]
  - Osteopenia [Recovering/Resolving]
  - Rash macular [Recovering/Resolving]

NARRATIVE: CASE EVENT DATE: 2010
